FAERS Safety Report 20537501 (Version 1)
Quarter: 2022Q1

REPORT INFORMATION
  Report Type: Report from Study
  Country: GB (occurrence: GB)
  Receive Date: 20220302
  Receipt Date: 20220302
  Transmission Date: 20220423
  Serious: Yes (Other)
  Sender: FDA-Public Use
  Company Number: GB-GLAXOSMITHKLINE-GB2022GSK037509

PATIENT
  Age: 63 Year
  Sex: Male
  Weight: 61 kg

DRUGS (1)
  1. BELANTAMAB MAFODOTIN [Suspect]
     Active Substance: BELANTAMAB MAFODOTIN
     Indication: Plasma cell myeloma
     Dosage: 3.4MG/KG OR 2.5MG/KG EVERY 3 WEEKS
     Route: 042
     Dates: start: 20211102, end: 20220127

REACTIONS (1)
  - Corneal defect [Not Recovered/Not Resolved]

NARRATIVE: CASE EVENT DATE: 20220126
